FAERS Safety Report 22102707 (Version 1)
Quarter: 2023Q1

REPORT INFORMATION
  Report Type: Spontaneous
  Country: CA (occurrence: CA)
  Receive Date: 20230316
  Receipt Date: 20230316
  Transmission Date: 20230418
  Serious: Yes (Hospitalization, Other)
  Sender: FDA-Public Use
  Company Number: CA-BAXTER-2023BAX015690

PATIENT
  Age: 71 Year
  Sex: Male
  Weight: 70 kg

DRUGS (18)
  1. CYCLOPHOSPHAMIDE [Suspect]
     Active Substance: CYCLOPHOSPHAMIDE
     Indication: Diffuse large B-cell lymphoma refractory
     Dosage: 920.0 MILLIGRAM, ONCE, DOSAGE FORM: NOT SPECIFIED
     Route: 065
  2. FLUDARABINE [Suspect]
     Active Substance: FLUDARABINE PHOSPHATE
     Indication: Diffuse large B-cell lymphoma refractory
     Dosage: 55.0 MILLIGRAM, ONCE, DOSAGE FORM: NOT SPECIFIED
     Route: 065
  3. YESCARTA [Suspect]
     Active Substance: AXICABTAGENE CILOLEUCEL
     Indication: Diffuse large B-cell lymphoma refractory
     Dosage: ONCE, DOSAGE FORM: SUSPENSION INTRAVENOUS
     Route: 065
  4. ACETAMINOPHEN [Concomitant]
     Active Substance: ACETAMINOPHEN
     Dosage: DOSAGE FORM: NOT SPECIFIED
     Route: 065
  5. AMLODIPINE [Concomitant]
     Active Substance: AMLODIPINE BESYLATE
     Dosage: UNK
     Route: 065
  6. DEXILANT [Concomitant]
     Active Substance: DEXLANSOPRAZOLE
     Dosage: DOSAGE FORM: CAPSULE, DELAYED RELEASE
     Route: 065
  7. DIPHENHYDRAMINE [Concomitant]
     Active Substance: DIPHENHYDRAMINE
     Dosage: DOSAGE FORM: NOT SPECIFIED
     Route: 065
  8. ENOXAPARIN [Concomitant]
     Active Substance: ENOXAPARIN
     Dosage: UNK
     Route: 065
  9. LORAZEPAM [Concomitant]
     Active Substance: LORAZEPAM
     Dosage: DOSAGE FORM: NOT SPECIFIED
     Route: 065
  10. MAGNESIUM [Concomitant]
     Active Substance: MAGNESIUM
     Dosage: DOSAGE FORM: NOT SPECIFIED
     Route: 065
  11. METOCLOPRAMIDE [Concomitant]
     Active Substance: METOCLOPRAMIDE
     Dosage: DOSAGE FORM: NOT SPECIFIED
     Route: 065
  12. MORPHINE [Concomitant]
     Active Substance: MORPHINE
     Dosage: DOSAGE FORM: NOT SPECIFIED
     Route: 065
  13. ONDANSETRON [Concomitant]
     Active Substance: ONDANSETRON
     Dosage: DOSAGE FORM: NOT SPECIFIED
     Route: 065
  14. OXAZEPAM [Concomitant]
     Active Substance: OXAZEPAM
     Dosage: UNK
     Route: 065
  15. UNSPECIFIED INGREDIENT [Concomitant]
     Active Substance: UNSPECIFIED INGREDIENT
     Dosage: DOSAGE FORM: NOT SPECIFIED
     Route: 065
  16. POLYETHYLENE GLYCOL [Concomitant]
     Active Substance: POLYETHYLENE GLYCOL
     Dosage: DOSAGE FORM: NOT SPECIFIED
     Route: 065
  17. PROCHLORPERAZINE [Concomitant]
     Active Substance: PROCHLORPERAZINE
     Dosage: DOSAGE FORM: NOT SPECIFIED
     Route: 065
  18. ROSUVASTATIN [Concomitant]
     Active Substance: ROSUVASTATIN
     Dosage: UNK
     Route: 065

REACTIONS (2)
  - Cytokine release syndrome [Recovered/Resolved]
  - Febrile neutropenia [Recovered/Resolved]
